FAERS Safety Report 8143419-8 (Version None)
Quarter: 2012Q1

REPORT INFORMATION
  Report Type: 
  Country: None (occurrence: None)
  Receive Date: 20120217
  Receipt Date: 20120209
  Transmission Date: 20120608
  Serious: Yes (Other)
  Sender: FDA-Public Use
  Company Number: US-JNJFOC-20120207294

PATIENT
  Sex: Male
  Weight: 102.06 kg

DRUGS (27)
  1. FENTANYL-100 [Suspect]
     Indication: BACK PAIN
     Dosage: NDC#00781-7242-55
     Route: 062
     Dates: start: 20120101
  2. FENTANYL-100 [Suspect]
     Indication: SPINAL FUSION SURGERY
     Dosage: NDC#00781-7242-55
     Route: 062
     Dates: start: 20120101
  3. DURAGESIC-100 [Suspect]
     Indication: ARTHRALGIA
     Route: 062
     Dates: start: 20110101, end: 20110101
  4. DURAGESIC-100 [Suspect]
     Indication: SPINAL FUSION SURGERY
     Route: 062
     Dates: start: 20110101, end: 20120101
  5. OMEPRAZOLE [Concomitant]
     Indication: GASTROOESOPHAGEAL REFLUX DISEASE
     Route: 048
     Dates: start: 20090101
  6. MELOXICAM [Concomitant]
     Indication: CARDIAC DISORDER
     Route: 048
     Dates: start: 20040101
  7. NITROSTAT [Concomitant]
     Indication: CARDIAC DISORDER
     Dosage: 0.4 MG AS NEEDED
     Route: 060
     Dates: start: 20040101
  8. FENTANYL-100 [Suspect]
     Indication: ARTHRALGIA
     Route: 062
     Dates: start: 20110101, end: 20110101
  9. DURAGESIC-100 [Suspect]
     Route: 062
     Dates: start: 20110101, end: 20120101
  10. DURAGESIC-100 [Suspect]
     Route: 062
     Dates: start: 20110101, end: 20110101
  11. DURAGESIC-100 [Suspect]
     Route: 062
     Dates: start: 20110101, end: 20110101
  12. DURAGESIC-100 [Suspect]
     Indication: BACK PAIN
     Route: 062
     Dates: start: 20110101, end: 20120101
  13. METOPROLOL TARTRATE [Concomitant]
     Indication: ARTHRITIS
     Route: 048
     Dates: start: 20040101
  14. CYMBALTA [Concomitant]
     Indication: DEPRESSION
     Route: 048
     Dates: start: 20100101
  15. FENTANYL-100 [Suspect]
     Dosage: NDC#00781-7242-55
     Route: 062
     Dates: start: 20120101
  16. FENTANYL-100 [Suspect]
     Route: 062
     Dates: start: 20110101, end: 20110101
  17. DURAGESIC-100 [Suspect]
     Route: 062
     Dates: start: 20110101, end: 20110101
  18. LORTAB [Concomitant]
     Indication: BREAKTHROUGH PAIN
     Dosage: 10/500 MG TABLETS ONCE IN 8 HOURS AS NEEDED
     Route: 048
     Dates: start: 20030101
  19. ASPIRIN [Concomitant]
     Indication: CARDIAC DISORDER
     Route: 048
     Dates: start: 20040101
  20. DURAGESIC-100 [Suspect]
     Route: 062
     Dates: start: 20110101, end: 20110101
  21. CYMBALTA [Concomitant]
     Indication: ANXIETY
     Route: 048
     Dates: start: 20100101
  22. CRESTOR [Concomitant]
     Indication: BLOOD DISORDER
     Route: 048
     Dates: start: 20040101
  23. FENTANYL-100 [Suspect]
     Route: 062
     Dates: start: 20110101, end: 20110101
  24. DURAGESIC-100 [Suspect]
     Route: 062
     Dates: start: 20110101, end: 20110101
  25. PLAVIX [Concomitant]
     Indication: CARDIAC DISORDER
     Route: 048
     Dates: start: 20040101
  26. MELOXICAM [Concomitant]
     Indication: BLOOD DISORDER
     Route: 048
     Dates: start: 20040101
  27. ZOCOR [Concomitant]
     Indication: BLOOD CHOLESTEROL
     Route: 048
     Dates: start: 20040101

REACTIONS (6)
  - SKELETAL INJURY [None]
  - WRONG TECHNIQUE IN DRUG USAGE PROCESS [None]
  - DRUG INEFFECTIVE [None]
  - PRODUCT QUALITY ISSUE [None]
  - FALL [None]
  - DRUG DOSE OMISSION [None]
